FAERS Safety Report 10778106 (Version 8)
Quarter: 2015Q3

REPORT INFORMATION
  Report Type: Report from Study
  Country: RU (occurrence: RU)
  Receive Date: 20150209
  Receipt Date: 20150826
  Transmission Date: 20151125
  Serious: Yes (Hospitalization)
  Sender: FDA-Public Use
  Company Number: RU-009507513-1502RUS003519

PATIENT
  Age: 77 Year
  Sex: Female

DRUGS (5)
  1. BETOPTIC [Concomitant]
     Active Substance: BETAXOLOL HYDROCHLORIDE
     Dosage: UNK
     Dates: start: 201110
  2. IBUPROFEN. [Concomitant]
     Active Substance: IBUPROFEN
     Indication: INFLUENZA LIKE ILLNESS
     Dosage: 400 MG, UNKNOWN
     Dates: start: 20141229, end: 20141231
  3. MEBEVERINE [Concomitant]
     Active Substance: MEBEVERINE
     Indication: FUNCTIONAL GASTROINTESTINAL DISORDER
     Dosage: 400 MG, BID
     Route: 048
     Dates: start: 20150113, end: 20150122
  4. LOZAP PLUS [Concomitant]
     Dosage: UNK
     Dates: start: 200901
  5. PEGINTERFERON ALFA-2B [Suspect]
     Active Substance: PEGINTERFERON ALFA-2B
     Indication: MALIGNANT MELANOMA
     Dosage: 6 MICROGRAM PER KILOGRAM, QW
     Route: 058
     Dates: start: 20141229, end: 20150105

REACTIONS (1)
  - Cholecystitis chronic [Recovered/Resolved]

NARRATIVE: CASE EVENT DATE: 20150108
